FAERS Safety Report 9105884 (Version 1)
Quarter: 2013Q1

REPORT INFORMATION
  Report Type: Spontaneous
  Country: US (occurrence: US)
  Receive Date: 20130220
  Receipt Date: 20130220
  Transmission Date: 20140127
  Serious: Yes (Hospitalization)
  Sender: FDA-Public Use
  Company Number: US-BAYER-2013-018879

PATIENT
  Age: 78 Year
  Sex: Male

DRUGS (1)
  1. ALEVE CAPLET/TABLET,MIDOL EXTENDED RELIEF CAPLET [Suspect]
     Dosage: 8 DF, QD

REACTIONS (4)
  - Gastrointestinal ulcer haemorrhage [None]
  - Volume blood decreased [None]
  - Overdose [None]
  - Fall [None]
